FAERS Safety Report 6258037-6 (Version None)
Quarter: 2009Q3

REPORT INFORMATION
  Report Type: 
  Country: None (occurrence: None)
  Receive Date: 20090707
  Receipt Date: 20090625
  Transmission Date: 20100115
  Serious: Yes (Other)
  Sender: FDA-Public Use
  Company Number: CA-JNJFOC-20090609545

PATIENT
  Sex: Female
  Weight: 69.1 kg

DRUGS (2)
  1. REMICADE [Suspect]
     Indication: CROHN'S DISEASE
     Route: 042
  2. TYLENOL (CAPLET) [Concomitant]
     Indication: PREMEDICATION

REACTIONS (6)
  - APHONIA [None]
  - INFUSION RELATED REACTION [None]
  - OROPHARYNGEAL PAIN [None]
  - PHARYNGEAL OEDEMA [None]
  - RASH GENERALISED [None]
  - VOMITING [None]
